FAERS Safety Report 14702388 (Version 1)
Quarter: 2018Q2

REPORT INFORMATION
  Report Type: Report from Study
  Country: DE (occurrence: DE)
  Receive Date: 20180401
  Receipt Date: 20180401
  Transmission Date: 20180711
  Serious: Yes (Other)
  Sender: FDA-Public Use
  Company Number: PHHY2017DE158731

PATIENT
  Sex: Male
  Weight: 98 kg

DRUGS (13)
  1. ASPIRIN. [Concomitant]
     Active Substance: ASPIRIN
     Indication: HYPERTENSION
     Dosage: 100 MG, QD
     Route: 065
     Dates: start: 201204, end: 201702
  2. EXJADE [Suspect]
     Active Substance: DEFERASIROX
     Indication: MYELODYSPLASTIC SYNDROME
     Dosage: 1500 MG, QD (15.30 MG/KG BODYWEIGHT/DAY=3X500 MG TABLETS/D1500 MG, QD
     Route: 048
     Dates: start: 20170224, end: 20170523
  3. AZACITIDINE. [Suspect]
     Active Substance: AZACITIDINE
     Indication: MYELODYSPLASTIC SYNDROME
     Dosage: 76 MG, QD
     Route: 042
  4. SILAPO [Concomitant]
     Indication: IRON OVERLOAD
     Dosage: 40 OT, QW
     Route: 065
     Dates: start: 201702, end: 20170407
  5. METOPROLOL. [Concomitant]
     Active Substance: METOPROLOL
     Indication: HYPERTENSION
     Dosage: 200 MG, QD
     Route: 065
     Dates: start: 201204
  6. CANDESARTAN. [Concomitant]
     Active Substance: CANDESARTAN
     Indication: HYPERTENSION
     Dosage: 16 MG, QD
     Route: 065
     Dates: start: 201702
  7. EXJADE [Suspect]
     Active Substance: DEFERASIROX
     Dosage: 20.83 MG/KG BODYWEIGHT/DAY=4X500 MG TABLETS/D2000 MG, QD
     Route: 048
     Dates: start: 20170524, end: 20170822
  8. HCT [Concomitant]
     Active Substance: HYDROCHLOROTHIAZIDE
     Indication: HYPERTENSION
     Dosage: 25 MG, QD
     Route: 065
     Dates: start: 201702
  9. EXJADE [Suspect]
     Active Substance: DEFERASIROX
     Dosage: 10,87 MG/KG BODYWEIGHT/DAY=2X500 MG TABLETS/D1000 MG, QD
     Route: 048
     Dates: start: 20170913, end: 20171130
  10. EXJADE [Suspect]
     Active Substance: DEFERASIROX
     Dosage: 1500 MG,16.66 MG/KG BODYWEIGHT/DAY=3X500 MG TABLETS/DAY
     Route: 048
     Dates: start: 20171201
  11. ALLOPURINOL. [Concomitant]
     Active Substance: ALLOPURINOL
     Indication: OSTEOARTHRITIS
     Dosage: UNK UNK, QD
     Route: 065
     Dates: start: 201204, end: 201702
  12. ATACAND [Concomitant]
     Active Substance: CANDESARTAN CILEXETIL
     Indication: HYPERTENSION
     Dosage: 04 MG, QD
     Route: 065
     Dates: start: 201204, end: 201702
  13. RIVAROXABAN [Concomitant]
     Active Substance: RIVAROXABAN
     Indication: HYPERTENSION
     Dosage: 20 MG, QD
     Route: 065
     Dates: start: 201204

REACTIONS (5)
  - Lymphopenia [Unknown]
  - Myelodysplastic syndrome [Not Recovered/Not Resolved]
  - Leukopenia [Not Recovered/Not Resolved]
  - Pancytopenia [Unknown]
  - Neutropenia [Unknown]

NARRATIVE: CASE EVENT DATE: 20170913
